FAERS Safety Report 9089928 (Version 1)
Quarter: 2013Q1

REPORT INFORMATION
  Report Type: Report from Study
  Country: US (occurrence: US)
  Receive Date: 20130201
  Receipt Date: 20130201
  Transmission Date: 20140127
  Serious: No
  Sender: FDA-Public Use
  Company Number: US-ABBOTT-12P-163-1013781-00

PATIENT
  Age: 49 Year
  Sex: Male

DRUGS (8)
  1. HUMIRA [Suspect]
     Indication: PSORIATIC ARTHROPATHY
     Route: 058
     Dates: start: 20120517, end: 20121009
  2. LOTREL [Concomitant]
  3. ASA [Concomitant]
  4. BUMEX [Concomitant]
  5. BENICAR [Concomitant]
  6. CELEBREX [Concomitant]
  7. ZIAC [Concomitant]
  8. DOXAZOSIN [Concomitant]

REACTIONS (3)
  - Cardiac failure congestive [Unknown]
  - Apnoea [Unknown]
  - Oedema [Unknown]
